FAERS Safety Report 18372346 (Version 2)
Quarter: 2020Q4

REPORT INFORMATION
  Report Type: Report from Study
  Country: US (occurrence: US)
  Receive Date: 20201012
  Receipt Date: 20201013
  Transmission Date: 20210114
  Serious: Yes (Hospitalization, Other)
  Sender: FDA-Public Use
  Company Number: US-GILEAD-2020-0498059

PATIENT
  Age: 68 Year
  Sex: Male
  Weight: 72.6 kg

DRUGS (11)
  1. TYVASO [Suspect]
     Active Substance: TREPROSTINIL
     Indication: PULMONARY ARTERIAL HYPERTENSION
     Dosage: UNK
     Route: 055
     Dates: start: 20200619
  2. AMBRISENTAN [Suspect]
     Active Substance: AMBRISENTAN
     Dosage: 10 MG
     Route: 065
     Dates: start: 20200702
  3. TYVASO [Suspect]
     Active Substance: TREPROSTINIL
     Dosage: 18 UG
     Route: 055
     Dates: start: 2020, end: 20200816
  4. AMBRISENTAN [Suspect]
     Active Substance: AMBRISENTAN
     Indication: PULMONARY ARTERIAL HYPERTENSION
     Dosage: 5 MG, QD
     Route: 065
     Dates: start: 20200624
  5. TYVASO [Suspect]
     Active Substance: TREPROSTINIL
     Dosage: UNK
     Route: 055
  6. SILDENAFIL CITRATE. [Concomitant]
     Active Substance: SILDENAFIL CITRATE
  7. TYVASO [Suspect]
     Active Substance: TREPROSTINIL
     Dosage: 18-54 (3-9 BREATHS) UG, QID
     Route: 055
  8. TYVASO [Suspect]
     Active Substance: TREPROSTINIL
     Dosage: UNK
     Route: 055
  9. TYVASO [Suspect]
     Active Substance: TREPROSTINIL
     Dosage: 54 UG (9 BREATHS)
     Route: 055
  10. TYVASO [Suspect]
     Active Substance: TREPROSTINIL
     Dosage: 36 UG (6 BREATHS), QID
     Route: 055
  11. AMLODIPINE [Concomitant]
     Active Substance: AMLODIPINE BESYLATE

REACTIONS (16)
  - Hypotension [Not Recovered/Not Resolved]
  - Diarrhoea [Unknown]
  - Stress [Not Recovered/Not Resolved]
  - Gait disturbance [Unknown]
  - Retching [Unknown]
  - Cough [Unknown]
  - Flushing [Unknown]
  - Tachycardia [Not Recovered/Not Resolved]
  - Dizziness [Unknown]
  - Heart rate increased [Unknown]
  - Illness [Unknown]
  - Presyncope [Unknown]
  - Headache [Unknown]
  - Asthenia [Unknown]
  - Oropharyngeal pain [Unknown]
  - Insomnia [Not Recovered/Not Resolved]

NARRATIVE: CASE EVENT DATE: 2020
